FAERS Safety Report 13919933 (Version 1)
Quarter: 2017Q3

REPORT INFORMATION
  Report Type: Spontaneous
  Country: US (occurrence: US)
  Receive Date: 20170829
  Receipt Date: 20170829
  Transmission Date: 20171127
  Serious: No
  Sender: FDA-Public Use
  Company Number: None

PATIENT
  Sex: Male
  Weight: 85.5 kg

DRUGS (1)
  1. STELARA [Suspect]
     Active Substance: USTEKINUMAB
     Indication: PSORIASIS
     Dosage: QUANTITY:1 INJECTION(S);OTHER FREQUENCY:EVERY THREE MONTHS;?
     Route: 030
     Dates: start: 20150801, end: 20160801

REACTIONS (1)
  - Headache [None]

NARRATIVE: CASE EVENT DATE: 20160801
